FAERS Safety Report 10307627 (Version 1)
Quarter: 2014Q3

REPORT INFORMATION
  Report Type: Spontaneous
  Country: US (occurrence: US)
  Receive Date: 20140716
  Receipt Date: 20140716
  Transmission Date: 20150326
  Serious: No
  Sender: FDA-Public Use
  Company Number: US-MYLANLABS-2013S1026280

PATIENT
  Age: 80 Year
  Sex: Female

DRUGS (5)
  1. AMLODIPINE [Suspect]
     Active Substance: AMLODIPINE BESYLATE
     Indication: BLOOD PRESSURE INCREASED
     Dosage: 5 MG,BID
     Route: 048
     Dates: start: 2013
  2. CLONIDINE HYDROCHLORIDE TABLETS USP [Suspect]
     Active Substance: CLONIDINE HYDROCHLORIDE
     Indication: BLOOD PRESSURE INCREASED
     Dosage: .1 MG,QD
     Route: 048
     Dates: start: 2013
  3. BENICAR [Concomitant]
     Active Substance: OLMESARTAN MEDOXOMIL
     Dosage: 40 MG,QD
     Route: 048
     Dates: start: 2010
  4. FUROSEMIDE TABLETS USP [Suspect]
     Active Substance: FUROSEMIDE
     Indication: BLOOD PRESSURE INCREASED
     Dosage: 60 MG,QD
     Route: 048
     Dates: start: 2013
  5. COREG [Concomitant]
     Active Substance: CARVEDILOL
     Dosage: 25 MG,BID
     Route: 048
     Dates: start: 2010

REACTIONS (2)
  - Sinus congestion [Not Recovered/Not Resolved]
  - Nasal dryness [Not Recovered/Not Resolved]

NARRATIVE: CASE EVENT DATE: 201310
